FAERS Safety Report 15391219 (Version 3)
Quarter: 2019Q3

REPORT INFORMATION
  Report Type: Spontaneous
  Country: GB (occurrence: GB)
  Receive Date: 20180917
  Receipt Date: 20190823
  Transmission Date: 20191004
  Serious: Yes (Hospitalization)
  Sender: FDA-Public Use
  Company Number: GB-TEVA-2018-GB-955374

PATIENT
  Age: 4 Day
  Sex: Female
  Weight: 3.34 kg

DRUGS (2)
  1. METOPROLOL. [Concomitant]
     Active Substance: METOPROLOL
     Route: 064
  2. FLUOXETINE HYDROCHLORIDE. [Suspect]
     Active Substance: FLUOXETINE HYDROCHLORIDE
     Route: 064

REACTIONS (3)
  - Foetal exposure during pregnancy [Unknown]
  - Somnolence [Recovered/Resolved]
  - Feeling jittery [Recovered/Resolved]
